FAERS Safety Report 9693728 (Version 2)
Quarter: 2014Q2

REPORT INFORMATION
  Report Type: Spontaneous
  Country: US (occurrence: US)
  Receive Date: 20131118
  Receipt Date: 20140501
  Transmission Date: 20141212
  Serious: Yes (Hospitalization, Other)
  Sender: FDA-Public Use
  Company Number: US-B.I. PHARMACEUTICALS,INC./RIDGEFIELD-2013-BI-36887BP

PATIENT
  Sex: Female

DRUGS (7)
  1. PRADAXA [Suspect]
     Indication: PRODUCT USED FOR UNKNOWN INDICATION
     Route: 065
     Dates: start: 201104
  2. SPIVIRA [Concomitant]
     Route: 065
  3. ALPRAZOLAM [Concomitant]
     Route: 065
  4. CRESTOR [Concomitant]
     Route: 065
  5. NAMENDA [Concomitant]
     Route: 065
  6. ANASTROZOLE [Concomitant]
     Route: 065
  7. LIDODERM [Concomitant]
     Route: 065

REACTIONS (2)
  - Acute myocardial infarction [Unknown]
  - Transient ischaemic attack [Unknown]
